FAERS Safety Report 20956452 (Version 1)
Quarter: 2022Q2

REPORT INFORMATION
  Report Type: Spontaneous
  Country: GB (occurrence: GB)
  Receive Date: 20220614
  Receipt Date: 20220614
  Transmission Date: 20220721
  Serious: No
  Sender: FDA-Public Use
  Company Number: GB-LUPIN PHARMACEUTICALS INC.-2022-08521

PATIENT
  Age: 3 Year
  Sex: Female

DRUGS (1)
  1. NADOLOL [Suspect]
     Active Substance: NADOLOL
     Indication: Product used for unknown indication
     Dosage: 2 TABLETS OF 80MG DISPERSED IN 10ML WATER AND 6.25ML ADMINISTERED
     Route: 048

REACTIONS (5)
  - Incorrect dose administered [Unknown]
  - Off label use [Unknown]
  - Incorrect product formulation administered [Unknown]
  - Wrong dosage formulation [Unknown]
  - Condition aggravated [Unknown]
